FAERS Safety Report 5311028-1 (Version None)
Quarter: 2007Q2

REPORT INFORMATION
  Report Type: 
  Country: None (occurrence: None)
  Receive Date: 20070430
  Receipt Date: 20070418
  Transmission Date: 20071010
  Serious: Yes (Life-Threatening, Other)
  Sender: FDA-Public Use
  Company Number: GB-JNJFOC-20070404505

PATIENT
  Age: 83 Year
  Sex: Female
  Weight: 60 kg

DRUGS (3)
  1. DAKTARIN [Suspect]
     Indication: ORAL CANDIDIASIS
     Route: 061
  2. WARFARIN SODIUM [Interacting]
     Indication: ATRIAL FIBRILLATION
     Route: 048
  3. DAKTARIN [Suspect]
     Route: 061

REACTIONS (4)
  - DRUG INTERACTION [None]
  - HAEMATURIA [None]
  - INTERNATIONAL NORMALISED RATIO INCREASED [None]
  - RECTAL HAEMORRHAGE [None]
